FAERS Safety Report 4778630-7 (Version None)
Quarter: 2005Q3

REPORT INFORMATION
  Report Type: 
  Country: None (occurrence: None)
  Receive Date: 20050922
  Receipt Date: 20050913
  Transmission Date: 20060218
  Serious: Yes (Other)
  Sender: FDA-Public Use
  Company Number: 12287

PATIENT
  Age: 65 Year
  Sex: Female

DRUGS (2)
  1. FLUCONAZOLE [Suspect]
     Indication: ORAL CANDIDIASIS
     Dosage: 200 MG DAILY PO
     Route: 048
     Dates: start: 20000101
  2. FLUCONAZOLE [Suspect]
     Indication: ORAL CANDIDIASIS
     Dates: start: 20030101

REACTIONS (6)
  - BLISTER [None]
  - DERMATITIS BULLOUS [None]
  - DYSPHAGIA [None]
  - ERYTHEMA MULTIFORME [None]
  - LICHEN PLANUS [None]
  - LYMPHOHISTIOCYTOSIS [None]
